FAERS Safety Report 6474805-X (Version None)
Quarter: 2009Q4

REPORT INFORMATION
  Report Type: 
  Country: None (occurrence: None)
  Receive Date: 20091204
  Receipt Date: 20091130
  Transmission Date: 20100525
  Serious: Yes (Other)
  Sender: FDA-Public Use
  Company Number: CHPA2009US22573

PATIENT
  Age: 2 Year
  Sex: Female
  Weight: 11.338 kg

DRUGS (1)
  1. EX-LAX MAX STR LAX PILLS SENNA (NCH) [Suspect]
     Dosage: 125 MG, ONCE/SINGLE
     Route: 048
     Dates: start: 20091123, end: 20091123

REACTIONS (3)
  - ACCIDENTAL DRUG INTAKE BY CHILD [None]
  - ACCIDENTAL OVERDOSE [None]
  - DIARRHOEA [None]
